FAERS Safety Report 6074153-6 (Version None)
Quarter: 2009Q1

REPORT INFORMATION
  Report Type: 
  Country: None (occurrence: None)
  Receive Date: 20090211
  Receipt Date: 20090129
  Transmission Date: 20090719
  Serious: Yes (Other)
  Sender: FDA-Public Use
  Company Number: JP-ROCHE-612645

PATIENT
  Sex: Female

DRUGS (5)
  1. XELODA [Suspect]
     Indication: BREAST CANCER RECURRENT
     Dosage: DRUG: XELODA 300.
     Route: 048
     Dates: end: 20090120
  2. PREDONINE [Suspect]
     Indication: RHEUMATOID ARTHRITIS
     Route: 065
  3. SELBEX [Suspect]
     Indication: RHEUMATOID ARTHRITIS
     Route: 048
  4. GASTER [Suspect]
     Indication: RHEUMATOID ARTHRITIS
     Route: 065
  5. FOLIAMIN [Suspect]
     Indication: RHEUMATOID ARTHRITIS
     Route: 065

REACTIONS (4)
  - CUTANEOUS LUPUS ERYTHEMATOSUS [None]
  - ERYTHEMA [None]
  - PAIN [None]
  - SKIN EXFOLIATION [None]
